FAERS Safety Report 22053425 (Version 2)
Quarter: 2023Q1

REPORT INFORMATION
  Report Type: Report from Study
  Country: NG (occurrence: NG)
  Receive Date: 20230302
  Receipt Date: 20230308
  Transmission Date: 20230417
  Serious: Yes (Other)
  Sender: FDA-Public Use
  Company Number: NG-002147023-NVSC2023NG046548

PATIENT
  Age: 72 Year
  Sex: Female

DRUGS (1)
  1. RIBOCICLIB [Suspect]
     Active Substance: RIBOCICLIB
     Indication: Product used for unknown indication
     Dosage: UNK
     Route: 065
     Dates: start: 20221004

REACTIONS (1)
  - Ischaemic stroke [Recovered/Resolved with Sequelae]

NARRATIVE: CASE EVENT DATE: 20221222
